FAERS Safety Report 4558756-3 (Version None)
Quarter: 2005Q1

REPORT INFORMATION
  Report Type: 
  Country: None (occurrence: None)
  Receive Date: 20050121
  Receipt Date: 20050110
  Transmission Date: 20050727
  Serious: Yes (Other)
  Sender: FDA-Public Use
  Company Number: FR-JNJFOC-20040906502

PATIENT
  Age: 43 Year
  Sex: Female
  Weight: 65 kg

DRUGS (6)
  1. EPITOMAX [Suspect]
     Route: 049
     Dates: start: 20040401, end: 20041101
  2. EPITOMAX [Suspect]
     Route: 049
     Dates: start: 20040401, end: 20041101
  3. EPITOMAX [Suspect]
     Indication: PUBIC PAIN
     Route: 049
     Dates: start: 20040401, end: 20041101
  4. DI-ANTALVIC [Concomitant]
     Route: 065
  5. DI-ANTALVIC [Concomitant]
     Indication: PAIN
     Route: 065
  6. PROZAC [Concomitant]
     Indication: DEPRESSION
     Route: 065

REACTIONS (3)
  - BALANCE DISORDER [None]
  - PYREXIA [None]
  - TREMOR [None]
